FAERS Safety Report 8795847 (Version 2)
Quarter: 2012Q4

REPORT INFORMATION
  Report Type: 
  Country: US (occurrence: US)
  Receive Date: 20120919
  Receipt Date: 20121113
  Transmission Date: 20130627
  Serious: Yes (Death, Other)
  Sender: FDA-Public Use
  Company Number: US-PFIZER INC-2012229690

PATIENT
  Age: 51 Year
  Sex: Female
  Weight: 94.33 kg

DRUGS (23)
  1. REVATIO [Suspect]
     Indication: PULMONARY ARTERIAL HYPERTENSION
     Dosage: 20 mg, 3x/day
     Route: 048
     Dates: start: 20100302
  2. REVATIO [Suspect]
     Dosage: 40 mg, 3x/day
     Route: 048
     Dates: start: 20100309
  3. TRACLEER [Concomitant]
     Indication: PULMONARY ARTERIAL HYPERTENSION
     Dosage: 125 mg, 2x/day
     Route: 048
     Dates: start: 20100304
  4. SEROQUEL [Concomitant]
     Dosage: 50 mg, at bedtime
     Route: 048
  5. ALAVERT [Concomitant]
     Dosage: 10 mg, Take one tablet by mouth daily
     Route: 048
     Dates: start: 20100228
  6. FERROUS SULFATE [Concomitant]
     Dosage: 325 mg, 2x/day (325 (65 FE) mg tab Take one tablet by twice a day)
     Route: 048
     Dates: start: 20100228
  7. BENTYL [Concomitant]
     Dosage: 10 mg, 3x/day
     Route: 048
     Dates: start: 20100228
  8. CELEXA [Concomitant]
     Dosage: 40 mg, 1 by mouth at bedtime
     Route: 048
  9. ALLOPURINOL [Concomitant]
     Dosage: 100 mg, Take one tablet by mouth daily
     Route: 048
     Dates: start: 20100228
  10. OMEPRAZOLE [Concomitant]
     Dosage: 20 mg, Take one tablet by mouth daily
     Route: 048
     Dates: start: 20100228
  11. PREDNISONE [Concomitant]
     Indication: COUGH
     Dosage: 5 mg, 1 tab daily by mouth
     Route: 048
     Dates: start: 20101104
  12. PREDNISONE [Concomitant]
     Indication: HEMOPTYSIS
     Dosage: 20 mg, 1x/day
     Route: 048
     Dates: start: 201005
  13. LASIX [Concomitant]
     Indication: RIGHT HEART FAILURE
     Dosage: 80 mg, 1x/day
     Route: 048
     Dates: start: 20101104
  14. VITAMIN D3 [Concomitant]
     Dosage: 2000 IU, 1x/day
     Dates: start: 20100618
  15. DUONEB [Concomitant]
     Indication: SHORTNESS OF BREATH
     Dosage: every 4-6 hours as needed
     Route: 055
     Dates: start: 20101104
  16. DUONEB [Concomitant]
     Indication: WHEEZE
  17. METFORMIN HYDROCHLORIDE [Concomitant]
     Dosage: 1000 mg, 2x/day
  18. KLOR-CON [Concomitant]
     Dosage: 20 mEq, 1x/day
     Dates: start: 20101208
  19. LOPERAMIDE HYDROCHLORIDE [Concomitant]
     Indication: DIARRHEA
     Dosage: 2 mg, as needed
  20. SYNTHROID [Concomitant]
     Dosage: 25 ug, 1x/day
     Route: 048
  21. ALDACTONE [Concomitant]
     Dosage: 25 mg, 1 tab by mouth daily
     Route: 048
     Dates: start: 20110302
  22. MAGNESIUM OXIDE [Concomitant]
     Dosage: 400 mg, 1 tab by mouth daily
     Route: 048
     Dates: start: 20101208
  23. MULTIVITAMINS [Concomitant]
     Dosage: 1 DF, 1x/day
     Dates: start: 20100228

REACTIONS (5)
  - Pulmonary arterial hypertension [Fatal]
  - Right ventricular failure [Unknown]
  - Syncope [Unknown]
  - Rash [Unknown]
  - Skin disorder [Unknown]
